FAERS Safety Report 13938852 (Version 1)
Quarter: 2017Q3

REPORT INFORMATION
  Report Type: Report from Study
  Country: None (occurrence: US)
  Receive Date: 20170906
  Receipt Date: 20170906
  Transmission Date: 20171127
  Serious: Yes (Hospitalization, Other)
  Sender: FDA-Public Use
  Company Number: US-ABBVIE-17K-163-1873145-00

PATIENT
  Age: 54 Year
  Sex: Female

DRUGS (3)
  1. HUMIRA [Suspect]
     Active Substance: ADALIMUMAB
     Indication: COLITIS ULCERATIVE
     Route: 058
     Dates: end: 201701
  2. HUMIRA [Suspect]
     Active Substance: ADALIMUMAB
     Route: 058
     Dates: start: 20170208, end: 2017
  3. HUMIRA [Suspect]
     Active Substance: ADALIMUMAB
     Route: 058
     Dates: start: 20170316, end: 2017

REACTIONS (8)
  - Colitis ulcerative [Recovered/Resolved]
  - Fungal skin infection [Not Recovered/Not Resolved]
  - Onychomycosis [Not Recovered/Not Resolved]
  - Drug effect decreased [Unknown]
  - Colitis ulcerative [Recovered/Resolved]
  - Pneumothorax [Unknown]
  - Fungal infection [Not Recovered/Not Resolved]
  - Neuralgia [Unknown]

NARRATIVE: CASE EVENT DATE: 2017
